FAERS Safety Report 10067839 (Version 1)
Quarter: 2014Q2

REPORT INFORMATION
  Report Type: Spontaneous
  Country: US (occurrence: US)
  Receive Date: 20140409
  Receipt Date: 20140409
  Transmission Date: 20141212
  Serious: No
  Sender: FDA-Public Use
  Company Number: US-BAYER-2014-052789

PATIENT
  Age: 80 Year
  Sex: Female
  Weight: 111 kg

DRUGS (3)
  1. ALEVE CAPLET [Suspect]
     Indication: ARTHRITIS
     Dosage: 2 DF, QD
     Route: 048
     Dates: start: 200910
  2. CENTRUM SILVER [Concomitant]
  3. LEVOTHYROXINE [Concomitant]

REACTIONS (2)
  - Intentional product misuse [None]
  - Incorrect drug administration duration [None]
